FAERS Safety Report 23027745 (Version 1)
Quarter: 2023Q4

REPORT INFORMATION
  Report Type: Spontaneous
  Country: US (occurrence: None)
  Receive Date: 20231003
  Receipt Date: 20231003
  Transmission Date: 20240110
  Serious: Yes (Death)
  Sender: FDA-Public Use
  Company Number: None

PATIENT
  Age: 67 Year
  Sex: Male
  Weight: 92.25 kg

DRUGS (5)
  1. REVLIMID [Suspect]
     Active Substance: LENALIDOMIDE
     Indication: Plasma cell myeloma
     Dosage: FREQUENCY : DAILY;?
     Route: 048
     Dates: start: 20210623, end: 20230930
  2. Zarxio (filgrastim-sndz) 0mcg SQ x 5d v3.0 [Concomitant]
     Dates: start: 20210423, end: 20210426
  3. Zometa (Zoledronic acid) 4mg IV q 3 months x 12 Cycles v4.0 [Concomitant]
     Dates: start: 20210730, end: 20210730
  4. Injectafer (ferric carboxymaltose inj) (iron) 50kg/110 Pounds or more [Concomitant]
     Dates: start: 20230203, end: 20230310
  5. Darzalex FasPro 1,800mg/30,000 Units Vial SUBQ wkly wk 1-8;q 2 wks wk9 [Concomitant]

REACTIONS (1)
  - Death [None]

NARRATIVE: CASE EVENT DATE: 20231001
